FAERS Safety Report 25634160 (Version 2)
Quarter: 2025Q3

REPORT INFORMATION
  Report Type: Spontaneous
  Country: JP (occurrence: JP)
  Receive Date: 20250801
  Receipt Date: 20250910
  Transmission Date: 20251021
  Serious: Yes (Hospitalization, Other)
  Sender: SUNOVION
  Company Number: JP-SMPA-2025SMP004961

PATIENT
  Age: 53 Year
  Sex: Male
  Weight: 69.7 kg

DRUGS (5)
  1. LATUDA [Suspect]
     Active Substance: LURASIDONE HYDROCHLORIDE
     Indication: Schizophrenia
     Dosage: 40 MG, QD
     Route: 048
     Dates: start: 20250319, end: 20250415
  2. ABILIFY [Suspect]
     Active Substance: ARIPIPRAZOLE
     Indication: Schizophrenia
     Dosage: 6 MG, TID
     Route: 048
     Dates: start: 20250116
  3. ABILIFY [Suspect]
     Active Substance: ARIPIPRAZOLE
     Dosage: 30 MG, QD
     Route: 048
     Dates: start: 20250219, end: 20250421
  4. LORAZEPAM [Concomitant]
     Active Substance: LORAZEPAM
     Indication: Stupor
     Dosage: 0.5 MG, TID
     Route: 048
     Dates: start: 20250116, end: 20250409
  5. LORAZEPAM [Concomitant]
     Active Substance: LORAZEPAM
     Indication: Irritability

REACTIONS (2)
  - Neuroleptic malignant syndrome [Recovered/Resolved]
  - Electroencephalogram abnormal [Recovered/Resolved]

NARRATIVE: CASE EVENT DATE: 20250415
